FAERS Safety Report 7229037-4 (Version None)
Quarter: 2011Q1

REPORT INFORMATION
  Report Type: 
  Country: None (occurrence: None)
  Receive Date: 20110117
  Receipt Date: 20110110
  Transmission Date: 20110831
  Serious: Yes (Other)
  Sender: FDA-Public Use
  Company Number: PHHY2010DE70955

PATIENT
  Age: 78 Year
  Sex: Female
  Weight: 52 kg

DRUGS (6)
  1. ACLASTA [Suspect]
     Indication: OSTEOPOROSIS
     Dosage: 5 MG
     Route: 042
     Dates: start: 20080618, end: 20100623
  2. GLUCOCORTICOIDS [Concomitant]
     Route: 048
  3. ACLASTA [Suspect]
     Dosage: 5 MG, UNK
     Route: 042
     Dates: start: 20090626, end: 20100623
  4. ACLASTA [Suspect]
     Dosage: 5 MG, UNK
     Route: 042
     Dates: start: 20100623, end: 20100623
  5. ANTIANDROGENS [Concomitant]
     Dosage: UNK
     Dates: start: 20100101
  6. ANTIEPILEPTICS [Concomitant]
     Dosage: UNK
     Dates: start: 20100101

REACTIONS (2)
  - FEMORAL NECK FRACTURE [None]
  - LUMBAR VERTEBRAL FRACTURE [None]
